FAERS Safety Report 4853329-7 (Version None)
Quarter: 2005Q4

REPORT INFORMATION
  Report Type: 
  Country: None (occurrence: None)
  Receive Date: 20051214
  Receipt Date: 20051202
  Transmission Date: 20060501
  Serious: Yes (Other)
  Sender: FDA-Public Use
  Company Number: JP-JPN-A20052969

PATIENT
  Age: 6 Year
  Sex: Male

DRUGS (5)
  1. ALKERAN [Suspect]
     Indication: PERIPHERAL T-CELL LYMPHOMA UNSPECIFIED
     Dosage: 60MGM2 UNKNOWN
     Route: 042
     Dates: start: 20021001
  2. FLUDARABINE PHOSPHATE [Concomitant]
     Indication: PERIPHERAL T-CELL LYMPHOMA UNSPECIFIED
     Dosage: 30MGM2 UNKNOWN
     Route: 065
     Dates: start: 20021001
  3. TOTAL BODY IRRADIATION [Concomitant]
     Route: 065
     Dates: start: 20021001
  4. INSULIN [Concomitant]
     Route: 065
  5. BONE MARROW TRANSPLANT [Concomitant]
     Route: 065

REACTIONS (4)
  - DIABETES MELLITUS INSULIN-DEPENDENT [None]
  - ENGRAFTMENT SYNDROME [None]
  - GRAFT VERSUS HOST DISEASE [None]
  - THROMBOTIC MICROANGIOPATHY [None]
